FAERS Safety Report 7932941-2 (Version None)
Quarter: 2011Q4

REPORT INFORMATION
  Report Type: 
  Country: None (occurrence: None)
  Receive Date: 20111122
  Receipt Date: 20111115
  Transmission Date: 20120403
  Serious: Yes (Other)
  Sender: FDA-Public Use
  Company Number: US-PFIZER INC-2011224734

PATIENT
  Sex: Female
  Weight: 79.365 kg

DRUGS (6)
  1. BACLOFEN [Concomitant]
     Indication: FIBROMYALGIA
     Dosage: 5 MG, 3X/DAY
     Dates: start: 20110913
  2. CELEBREX [Suspect]
     Indication: BACK PAIN
     Dosage: 200 MG, 3X/DAY
     Route: 048
     Dates: start: 20110916
  3. CELEBREX [Suspect]
     Indication: FIBROMYALGIA
     Dosage: 200 MG, 1X/DAY
     Route: 048
     Dates: start: 20110913
  4. RANITIDINE [Concomitant]
     Indication: GASTROOESOPHAGEAL REFLUX DISEASE
     Dosage: UNK
  5. DIFLUCAN [Concomitant]
     Indication: CANDIDIASIS
     Dosage: 150 MG, UNK
     Route: 048
     Dates: start: 20110913, end: 20110914
  6. FLEXERIL [Concomitant]

REACTIONS (7)
  - PALPITATIONS [None]
  - MALAISE [None]
  - ASTHENIA [None]
  - PRESYNCOPE [None]
  - PAIN [None]
  - DIARRHOEA [None]
  - TREMOR [None]
